FAERS Safety Report 18928183 (Version 1)
Quarter: 2021Q1

REPORT INFORMATION
  Report Type: Report from Study
  Country: US (occurrence: US)
  Receive Date: 20210223
  Receipt Date: 20210223
  Transmission Date: 20210420
  Serious: Yes (Death, Other)
  Sender: FDA-Public Use
  Company Number: US-SUN PHARMACEUTICAL INDUSTRIES LTD-2021R1-281175

PATIENT
  Age: 33 Year
  Sex: Male

DRUGS (2)
  1. CLONAZEPAM. [Suspect]
     Active Substance: CLONAZEPAM
     Indication: PRODUCT USED FOR UNKNOWN INDICATION
     Dosage: UNK
     Route: 065
  2. AMITRIPTYLINE [Suspect]
     Active Substance: AMITRIPTYLINE
     Indication: PRODUCT USED FOR UNKNOWN INDICATION
     Dosage: UNK
     Route: 065

REACTIONS (10)
  - Electrocardiogram QT prolonged [Fatal]
  - Coagulopathy [Fatal]
  - Pneumonia aspiration [Fatal]
  - Acute lung injury [Fatal]
  - Tachycardia [Fatal]
  - Electrocardiogram QRS complex prolonged [Fatal]
  - Depressed level of consciousness [Fatal]
  - Anion gap [Fatal]
  - Rhabdomyolysis [Fatal]
  - Respiratory depression [Fatal]
